FAERS Safety Report 4455467-X (Version None)
Quarter: 2004Q3

REPORT INFORMATION
  Report Type: 
  Country: None (occurrence: None)
  Receive Date: 20040917
  Receipt Date: 20040901
  Transmission Date: 20050211
  Serious: Yes (Life-Threatening, Other)
  Sender: FDA-Public Use
  Company Number: DE_040914223

PATIENT
  Age: 61 Year
  Sex: Male
  Weight: 70 kg

DRUGS (4)
  1. XIGRIS [Suspect]
     Indication: ORGAN FAILURE
     Dosage: 24 UG/KG/HR
     Dates: start: 20040731, end: 20040804
  2. XIGRIS [Suspect]
     Indication: SEPSIS
     Dosage: 24 UG/KG/HR
     Dates: start: 20040731, end: 20040804
  3. PROPOFOL [Concomitant]
  4. CATECHOLAMINES [Concomitant]

REACTIONS (5)
  - CARDIAC DISORDER [None]
  - CRUSH SYNDROME [None]
  - DIALYSIS [None]
  - RHABDOMYOLYSIS [None]
  - TROPONIN INCREASED [None]
